FAERS Safety Report 4349803-2 (Version None)
Quarter: 2004Q2

REPORT INFORMATION
  Report Type: 
  Country: None (occurrence: None)
  Receive Date: 20040428
  Receipt Date: 20040428
  Transmission Date: 20050107
  Serious: Yes (Life-Threatening, Hospitalization)
  Sender: FDA-Public Use
  Company Number: None

PATIENT
  Age: 31 Year
  Sex: Female
  Weight: 77.1115 kg

DRUGS (2)
  1. ZOLOFT [Suspect]
     Indication: DEPRESSION
     Dosage: 50 MG 1# DAILY
     Dates: start: 20040414
  2. ZOLOFT [Suspect]
     Indication: DEPRESSION
     Dosage: 50 MG 1# DAILY
     Dates: start: 20040501

REACTIONS (2)
  - DELUSION [None]
  - DRUG TOXICITY [None]
